FAERS Safety Report 10310974 (Version 1)
Quarter: 2014Q3

REPORT INFORMATION
  Report Type: Spontaneous
  Country: GB (occurrence: None)
  Receive Date: 20140714
  Receipt Date: 20140714
  Transmission Date: 20150326
  Serious: Yes (Hospitalization)
  Sender: FDA-Public Use
  Company Number: 2423952

PATIENT
  Age: 15 Year
  Sex: Female

DRUGS (3)
  1. ATRACURIUM BESILATE [Suspect]
     Active Substance: ATRACURIUM BESYLATE
     Indication: ENDOTRACHEAL INTUBATION
  2. (PROPOFOL) [Concomitant]
     Active Substance: PROPOFOL
  3. (REMIFENTANIL) [Concomitant]

REACTIONS (1)
  - Torticollis [None]
